FAERS Safety Report 10501151 (Version 1)
Quarter: 2014Q4

REPORT INFORMATION
  Report Type: Spontaneous
  Country: US (occurrence: None)
  Receive Date: 20141006
  Receipt Date: 20141006
  Transmission Date: 20150528
  Serious: Yes (Other)
  Sender: FDA-Public Use
  Company Number: None

PATIENT
  Age: 66 Year
  Sex: Male
  Weight: 62.6 kg

DRUGS (1)
  1. CIPRO [Suspect]
     Active Substance: CIPROFLOXACIN HYDROCHLORIDE
     Indication: URINARY TRACT INFECTION
     Dosage: 1 TABLET 2X A DAY
     Route: 048
     Dates: start: 20140923, end: 20141003

REACTIONS (13)
  - Stomatitis [None]
  - Abdominal distension [None]
  - Throat tightness [None]
  - Eye irritation [None]
  - Weight decreased [None]
  - Rash [None]
  - Asthenia [None]
  - Chills [None]
  - Flatulence [None]
  - Arthralgia [None]
  - Decreased appetite [None]
  - Fatigue [None]
  - Dyspepsia [None]

NARRATIVE: CASE EVENT DATE: 20141003
